FAERS Safety Report 11340532 (Version 1)
Quarter: 2015Q3

REPORT INFORMATION
  Report Type: Spontaneous
  Country: US (occurrence: US)
  Receive Date: 20150805
  Receipt Date: 20150805
  Transmission Date: 20151125
  Serious: Yes (Other)
  Sender: FDA-Public Use
  Company Number: US-CELGENEUS-USA-2015075178

PATIENT
  Sex: Male

DRUGS (2)
  1. REVLIMID [Suspect]
     Active Substance: LENALIDOMIDE
     Indication: PROSTATE CANCER
     Dosage: 5 MILLIGRAM
     Route: 048
     Dates: start: 201407
  2. THALOMID [Suspect]
     Active Substance: THALIDOMIDE
     Indication: PROSTATE CANCER
     Route: 048
     Dates: start: 201407

REACTIONS (2)
  - Platelet count decreased [Unknown]
  - Neuropathy peripheral [Unknown]
